FAERS Safety Report 5207850-2 (Version None)
Quarter: 2007Q1

REPORT INFORMATION
  Report Type: 
  Country: None (occurrence: None)
  Receive Date: 20070112
  Receipt Date: 20070105
  Transmission Date: 20070707
  Serious: Yes (Hospitalization, Other)
  Sender: FDA-Public Use
  Company Number: BR-PFIZER INC-2007001948

PATIENT
  Sex: Male

DRUGS (2)
  1. LIPITOR [Suspect]
     Indication: DYSLIPIDAEMIA
     Dosage: FREQ:ONCE DAILY
     Route: 048
  2. ANTIHYPERTENSIVES [Concomitant]
     Route: 048

REACTIONS (2)
  - ANEURYSM [None]
  - PNEUMONIA [None]
